FAERS Safety Report 9873788 (Version 1)
Quarter: 2014Q1

REPORT INFORMATION
  Report Type: Spontaneous
  Country: US (occurrence: US)
  Receive Date: 20140206
  Receipt Date: 20140206
  Transmission Date: 20141002
  Serious: No
  Sender: FDA-Public Use
  Company Number: US-ACORDA-ACO_34554_2013

PATIENT
  Sex: Male
  Weight: 68.93 kg

DRUGS (1)
  1. AMPYRA [Suspect]
     Indication: GAIT DISTURBANCE
     Dosage: 10 MG, QD
     Route: 048
     Dates: start: 2011, end: 2011

REACTIONS (4)
  - Tremor [Recovered/Resolved]
  - Visual impairment [Recovered/Resolved]
  - Balance disorder [Recovered/Resolved]
  - Inappropriate schedule of drug administration [Unknown]
